FAERS Safety Report 16294996 (Version 1)
Quarter: 2019Q2

REPORT INFORMATION
  Report Type: Spontaneous
  Country: US (occurrence: US)
  Receive Date: 20190509
  Receipt Date: 20190509
  Transmission Date: 20190711
  Serious: No
  Sender: FDA-Public Use
  Company Number: US-ROCHE-2207009

PATIENT
  Sex: Male

DRUGS (11)
  1. RED YEAST RICE [Concomitant]
     Active Substance: DIETARY SUPPLEMENT
  2. VITAMIN B6 [Concomitant]
     Active Substance: PYRIDOXINE HYDROCHLORIDE
  3. MONTELUKAST SODIUM. [Concomitant]
     Active Substance: MONTELUKAST SODIUM
  4. AZELASTINE HCL [Concomitant]
     Active Substance: AZELASTINE HYDROCHLORIDE
  5. GLUCOSAMINE CHONDROITIN COMPLEX [Concomitant]
     Active Substance: CHONDROITIN SULFATE (BOVINE)\GLUCOSAMINE HYDROCHLORIDE
  6. TAMSULOSIN HCL [Concomitant]
     Active Substance: TAMSULOSIN HYDROCHLORIDE
  7. ESBRIET [Suspect]
     Active Substance: PIRFENIDONE
     Indication: IDIOPATHIC PULMONARY FIBROSIS
     Dosage: 1 TABLET?2 TABLET 267 MG?3 TABLET 267 MG
     Route: 048
     Dates: start: 20181017
  8. CALCITRATE [Concomitant]
     Active Substance: CALCIUM CITRATE
  9. FINASTERIDE. [Concomitant]
     Active Substance: FINASTERIDE
  10. LATANOPROST. [Concomitant]
     Active Substance: LATANOPROST
  11. DORZOLAMIDE HCL [Concomitant]
     Active Substance: DORZOLAMIDE HYDROCHLORIDE

REACTIONS (1)
  - Sinusitis [Not Recovered/Not Resolved]
